FAERS Safety Report 12213677 (Version 2)
Quarter: 2016Q2

REPORT INFORMATION
  Report Type: Spontaneous
  Country: US (occurrence: US)
  Receive Date: 20160328
  Receipt Date: 20160609
  Transmission Date: 20160815
  Serious: No
  Sender: FDA-Public Use
  Company Number: US-PFIZER INC-2016160410

PATIENT
  Age: 60 Year
  Sex: Female

DRUGS (1)
  1. LYRICA [Suspect]
     Active Substance: PREGABALIN
     Indication: FIBROMYALGIA
     Dosage: 150 MG, 2X/DAY
     Dates: start: 201407

REACTIONS (11)
  - Sinus headache [Unknown]
  - Oesophageal irritation [Unknown]
  - Sinusitis [Recovered/Resolved]
  - Drug ineffective [Unknown]
  - Headache [Unknown]
  - Temporomandibular joint syndrome [Unknown]
  - Depression [Not Recovered/Not Resolved]
  - Malaise [Unknown]
  - Hyperphagia [Not Recovered/Not Resolved]
  - Weight increased [Not Recovered/Not Resolved]
  - Irritable bowel syndrome [Unknown]
